FAERS Safety Report 6318243-9 (Version None)
Quarter: 2009Q3

REPORT INFORMATION
  Report Type: 
  Country: None (occurrence: None)
  Receive Date: 20090820
  Receipt Date: 20090820
  Transmission Date: 20100115
  Serious: Yes (Hospitalization)
  Sender: FDA-Public Use
  Company Number: None

PATIENT
  Age: 68 Year
  Sex: Male

DRUGS (1)
  1. CEFTRIAXONE [Suspect]
     Indication: INFECTION
     Dosage: 1 GM ONCE IM
     Route: 030
     Dates: start: 20090701, end: 20090701

REACTIONS (3)
  - INJECTION SITE IRRITATION [None]
  - RASH [None]
  - WHEEZING [None]
